FAERS Safety Report 22337108 (Version 1)
Quarter: 2023Q2

REPORT INFORMATION
  Report Type: Spontaneous
  Country: GB (occurrence: GB)
  Receive Date: 20230518
  Receipt Date: 20230518
  Transmission Date: 20230722
  Serious: Yes (Hospitalization, Other)
  Sender: FDA-Public Use
  Company Number: GB-ROCHE-3180009

PATIENT
  Age: 59 Year
  Weight: 51 kg

DRUGS (5)
  1. LENALIDOMIDE [Suspect]
     Active Substance: LENALIDOMIDE
     Indication: Follicular lymphoma
     Dosage: 20 MILLIGRAM, ONCE A DAY (ONCE DAILY FOR 1 - 21 DAYS. ON 26/MAR/2023 LAST DOSE OF DRUG ADMINISTERED
     Route: 048
     Dates: start: 20220929
  2. CYCLOPHOSPHAMIDE [Suspect]
     Active Substance: CYCLOPHOSPHAMIDE
     Indication: Follicular lymphoma
     Dosage: UNK (ON 17/JUN/2022, THE PATIENT RECEIVED LAST DOSE OF STUDY DRUG)
     Route: 065
     Dates: start: 20211111
  3. OBINUTUZUMAB [Suspect]
     Active Substance: OBINUTUZUMAB
     Indication: Follicular lymphoma
     Dosage: 1000 MILLIGRAM EVERY 8 WEEK
     Route: 042
     Dates: start: 20211111
  4. PREDNISONE [Suspect]
     Active Substance: PREDNISONE
     Indication: Follicular lymphoma
     Dosage: UNK (ON 17/JUN/2022, THE PATIENT RECEIVED LAST DOSE OF STUDY DRUG.)
     Route: 065
     Dates: start: 20211111
  5. VINCRISTINE [Suspect]
     Active Substance: VINCRISTINE
     Indication: Follicular lymphoma
     Dosage: UNK (ON 17/JUN/2022, THE PATIENT RECEIVED LAST DOSE OF STUDY DRUG)
     Route: 065
     Dates: start: 20211111

REACTIONS (5)
  - Neutropenia [Recovering/Resolving]
  - Neutropenic sepsis [Recovering/Resolving]
  - Malaise [Unknown]
  - Lethargy [Unknown]
  - C-reactive protein increased [Unknown]

NARRATIVE: CASE EVENT DATE: 20220820
